FAERS Safety Report 5023274-5 (Version None)
Quarter: 2006Q2

REPORT INFORMATION
  Report Type: 
  Country: None (occurrence: None)
  Receive Date: 20060605
  Receipt Date: 20060523
  Transmission Date: 20061013
  Serious: Yes (Other)
  Sender: FDA-Public Use
  Company Number: GXKR2006TN02651

PATIENT
  Age: 42 Year
  Sex: Female

DRUGS (4)
  1. ISONIAZID [Suspect]
     Indication: LYMPH NODE TUBERCULOSIS
     Dosage: 5 MG/KG
  2. RIFAMPICIN [Concomitant]
  3. PYRAZINAMIDE [Concomitant]
  4. STREPTOMYCIN [Concomitant]

REACTIONS (2)
  - HALLUCINATION, VISUAL [None]
  - HEADACHE [None]
